FAERS Safety Report 10357069 (Version 1)
Quarter: 2014Q3

REPORT INFORMATION
  Report Type: Spontaneous
  Country: US (occurrence: US)
  Receive Date: 20140801
  Receipt Date: 20140801
  Transmission Date: 20150326
  Serious: Yes (Other)
  Sender: FDA-Public Use
  Company Number: US-PFIZER INC-2014213438

PATIENT
  Age: 65 Year
  Sex: Female
  Weight: 81.63 kg

DRUGS (3)
  1. COUMADINE [Concomitant]
     Active Substance: WARFARIN SODIUM
     Dosage: ONCE A DAY
  2. DILANTIN [Suspect]
     Active Substance: PHENYTOIN
     Indication: CONVULSION
     Dosage: 200 MG, 2X/DAY
     Route: 048
  3. OXYBUTYNIN [Concomitant]
     Active Substance: OXYBUTYNIN
     Dosage: 5 MG, 3X/DAY

REACTIONS (1)
  - Breast cancer female [Unknown]

NARRATIVE: CASE EVENT DATE: 2011
